FAERS Safety Report 7785257-1 (Version None)
Quarter: 2011Q3

REPORT INFORMATION
  Report Type: 
  Country: None (occurrence: None)
  Receive Date: 20110929
  Receipt Date: 20110926
  Transmission Date: 20111222
  Serious: Yes (Death)
  Sender: FDA-Public Use
  Company Number: PHHY2011LB83982

PATIENT
  Sex: Male

DRUGS (1)
  1. EXELON [Suspect]
     Indication: COGNITIVE DISORDER
     Dosage: 3 MG, PER 24 H
     Route: 048
     Dates: start: 20110910

REACTIONS (1)
  - UROSEPSIS [None]
